FAERS Safety Report 7399459-X (Version None)
Quarter: 2011Q2

REPORT INFORMATION
  Report Type: 
  Country: None (occurrence: None)
  Receive Date: 20110407
  Receipt Date: 20110325
  Transmission Date: 20111010
  Serious: Yes (Disabling)
  Sender: FDA-Public Use
  Company Number: PHHY2011DE25017

PATIENT
  Sex: Male

DRUGS (3)
  1. IBUPROFEN [Suspect]
     Indication: GOUT
     Dosage: UNK
     Dates: start: 20010101
  2. DICLOFENAC [Suspect]
     Dosage: UNK
  3. TELFAST [Suspect]
     Dosage: UNK

REACTIONS (3)
  - LIVER DISORDER [None]
  - ARTHRALGIA [None]
  - SPLEEN DISORDER [None]
